FAERS Safety Report 5221976-9 (Version None)
Quarter: 2007Q1

REPORT INFORMATION
  Report Type: 
  Country: None (occurrence: None)
  Receive Date: 20070129
  Receipt Date: 20060223
  Transmission Date: 20070707
  Serious: No
  Sender: FDA-Public Use
  Company Number: US-GLAXOSMITHKLINE-A0594974A

PATIENT
  Age: 62 Year
  Sex: Female

DRUGS (7)
  1. BUPROPION HYDROCHLORIDE [Suspect]
     Indication: DEPRESSION
     Dosage: 150MG THREE TIMES PER DAY
     Route: 048
     Dates: start: 19980101
  2. LAMICTAL [Suspect]
     Indication: BIPOLAR DISORDER
     Dosage: 300 PER DAY
     Route: 048
     Dates: start: 20051128
  3. UNKNOWN MEDICATION [Concomitant]
  4. LORTAB [Concomitant]
  5. ADDERALL 10 [Concomitant]
  6. ZOLOFT [Concomitant]
  7. ATARAX [Concomitant]

REACTIONS (1)
  - BARBITURATES POSITIVE [None]
